FAERS Safety Report 4446548-5 (Version None)
Quarter: 2004Q3

REPORT INFORMATION
  Report Type: 
  Country: None (occurrence: None)
  Receive Date: 20040902
  Receipt Date: 20040825
  Transmission Date: 20050211
  Serious: Yes (Hospitalization)
  Sender: FDA-Public Use
  Company Number: 2004080010 (0)

PATIENT
  Age: 75 Year
  Sex: Male

DRUGS (1)
  1. DORAL [Suspect]
     Dosage: PO
     Route: 048

REACTIONS (1)
  - HYPERSOMNIA [None]
